FAERS Safety Report 10895573 (Version 1)
Quarter: 2015Q1

REPORT INFORMATION
  Report Type: Spontaneous
  Country: US (occurrence: US)
  Receive Date: 20150306
  Receipt Date: 20150306
  Transmission Date: 20150721
  Serious: No
  Sender: FDA-Public Use
  Company Number: US-AMGEN-USASP2015007217

PATIENT
  Age: 79 Year
  Sex: Female

DRUGS (8)
  1. METOPROLOL                         /00376902/ [Concomitant]
     Active Substance: METOPROLOL
  2. ISOSORBIDE                         /07346401/ [Concomitant]
     Indication: CORONARY ARTERY DISEASE
  3. OMEPRAZOLE. [Concomitant]
     Active Substance: OMEPRAZOLE
  4. FUROSEMIDE. [Concomitant]
     Active Substance: FUROSEMIDE
  5. HYDRALAZINE [Concomitant]
     Active Substance: HYDRALAZINE HYDROCHLORIDE
  6. SENSIPAR [Suspect]
     Active Substance: CINACALCET HYDROCHLORIDE
     Indication: HYPERPARATHYROIDISM SECONDARY
     Dosage: 30 MG, QD
     Route: 065
     Dates: start: 20141219
  7. DILTIZEM [Concomitant]
  8. FOSAMAX [Concomitant]
     Active Substance: ALENDRONATE SODIUM

REACTIONS (2)
  - Blood calcium decreased [Unknown]
  - Blood parathyroid hormone abnormal [Unknown]
